FAERS Safety Report 6417062-2 (Version None)
Quarter: 2009Q4

REPORT INFORMATION
  Report Type: 
  Country: None (occurrence: None)
  Receive Date: 20091028
  Receipt Date: 20091019
  Transmission Date: 20100525
  Serious: Yes (Hospitalization)
  Sender: FDA-Public Use
  Company Number: US-BIOGENIDEC-2009BI033703

PATIENT
  Age: 48 Year
  Sex: Female

DRUGS (1)
  1. TYSABRI [Suspect]
     Indication: MULTIPLE SCLEROSIS
     Route: 042
     Dates: start: 20070622

REACTIONS (17)
  - BENIGN NEOPLASM [None]
  - CARPAL TUNNEL SYNDROME [None]
  - CHONDROPATHY [None]
  - FALL [None]
  - FATIGUE [None]
  - FLOATING PATELLA [None]
  - GAIT DISTURBANCE [None]
  - HIP FRACTURE [None]
  - INTERVERTEBRAL DISC DISORDER [None]
  - JOINT EFFUSION [None]
  - LIMB INJURY [None]
  - LUMBAR VERTEBRAL FRACTURE [None]
  - MEDICAL DEVICE COMPLICATION [None]
  - MULTIPLE SCLEROSIS RELAPSE [None]
  - MUSCULAR WEAKNESS [None]
  - PERONEAL NERVE PALSY [None]
  - VEIN DISORDER [None]
